FAERS Safety Report 13601028 (Version 1)
Quarter: 2017Q2

REPORT INFORMATION
  Report Type: Spontaneous
  Country: US (occurrence: US)
  Receive Date: 20170601
  Receipt Date: 20170601
  Transmission Date: 20170830
  Serious: No
  Sender: FDA-Public Use
  Company Number: US-TEVA-694450USA

PATIENT
  Sex: Female

DRUGS (1)
  1. CHILDRENS IBUPROFEN [Suspect]
     Active Substance: IBUPROFEN
     Dosage: 100MG PER 5ML
     Route: 065

REACTIONS (3)
  - Abdominal pain upper [Unknown]
  - Nervousness [Unknown]
  - Product physical issue [Unknown]
